FAERS Safety Report 12781814 (Version 1)
Quarter: 2016Q3

REPORT INFORMATION
  Report Type: Report from Study
  Country: DE (occurrence: DE)
  Receive Date: 20160926
  Receipt Date: 20160926
  Transmission Date: 20161109
  Serious: Yes (Hospitalization)
  Sender: FDA-Public Use
  Company Number: US-ASTRAZENECA-2016SF02191

PATIENT
  Age: 4 Month
  Sex: Female

DRUGS (5)
  1. SYNAGIS [Suspect]
     Active Substance: PALIVIZUMAB
     Indication: ANTIVIRAL PROPHYLAXIS
     Dosage: 78 MG
     Route: 030
     Dates: start: 20110119, end: 20110119
  2. SYNAGIS [Suspect]
     Active Substance: PALIVIZUMAB
     Indication: ANTIVIRAL PROPHYLAXIS
     Dosage: 57 MG
     Route: 030
     Dates: start: 20101105, end: 20101105
  3. SYNAGIS [Suspect]
     Active Substance: PALIVIZUMAB
     Indication: ANTIVIRAL PROPHYLAXIS
     Dosage: 137 MG
     Route: 030
     Dates: start: 20110217, end: 20110217
  4. SYNAGIS [Suspect]
     Active Substance: PALIVIZUMAB
     Indication: ANTIVIRAL PROPHYLAXIS
     Dosage: 140 MG
     Route: 030
     Dates: start: 20110314, end: 20110314
  5. SYNAGIS [Suspect]
     Active Substance: PALIVIZUMAB
     Indication: ANTIVIRAL PROPHYLAXIS
     Dosage: 66 MG
     Route: 030
     Dates: start: 20101206, end: 20101206

REACTIONS (2)
  - Pneumonia respiratory syncytial viral [Unknown]
  - Bronchitis [Unknown]

NARRATIVE: CASE EVENT DATE: 201012
